FAERS Safety Report 8911740 (Version 1)
Quarter: 2012Q4

REPORT INFORMATION
  Report Type: 
  Country: US (occurrence: US)
  Receive Date: 20121116
  Receipt Date: 20121116
  Transmission Date: 20130627
  Serious: No
  Sender: FDA-Public Use
  Company Number: US-MYLANLABS-2012S1006879

PATIENT
  Age: 71 Year
  Sex: Female

DRUGS (5)
  1. HYDROCHLOROTHIAZIDE CAPSULES [Suspect]
     Indication: BLOOD PRESSURE INCREASED
     Route: 048
     Dates: start: 20120209, end: 20120316
  2. HYDROCHLOROTHIAZIDE CAPSULES [Suspect]
     Indication: HYPERTENSION
     Route: 048
     Dates: start: 20120209, end: 20120316
  3. AMLODIPINE BESILATE [Suspect]
     Indication: BLOOD PRESSURE INCREASED
     Route: 048
     Dates: start: 2010
  4. CLONIDINE [Concomitant]
  5. AMLODIPINE [Concomitant]

REACTIONS (12)
  - Visual acuity reduced [Recovering/Resolving]
  - Vision blurred [Recovering/Resolving]
  - Lip swelling [Recovering/Resolving]
  - Hypoaesthesia oral [Recovering/Resolving]
  - Reaction to drug excipients [Recovering/Resolving]
  - Thirst [Recovering/Resolving]
  - Eye pain [Recovering/Resolving]
  - Lip dry [Recovering/Resolving]
  - Swollen tongue [Not Recovered/Not Resolved]
  - Dry mouth [Not Recovered/Not Resolved]
  - Micturition disorder [Not Recovered/Not Resolved]
  - Cough [Not Recovered/Not Resolved]
